FAERS Safety Report 9079814 (Version 1)
Quarter: 2013Q1

REPORT INFORMATION
  Report Type: Spontaneous
  Country: IT (occurrence: IT)
  Receive Date: 20130215
  Receipt Date: 20130215
  Transmission Date: 20140127
  Serious: Yes (Hospitalization)
  Sender: FDA-Public Use
  Company Number: IT-GLAXOSMITHKLINE-B0867101A

PATIENT
  Age: 40 Year
  Sex: Female

DRUGS (3)
  1. SEREUPIN [Suspect]
     Indication: DEPRESSION
     Dosage: 20MG PER DAY
     Route: 048
     Dates: start: 20130205, end: 20130205
  2. RIZEN [Suspect]
     Indication: DEPRESSION
     Dosage: 10MG PER DAY
     Route: 048
     Dates: start: 20130205, end: 20130205
  3. XANAX [Suspect]
     Indication: DEPRESSION
     Dosage: 20TAB PER DAY
     Route: 048
     Dates: start: 20130205, end: 20130205

REACTIONS (5)
  - Intentional self-injury [Recovered/Resolved]
  - Hypotension [Recovered/Resolved]
  - Bradykinesia [Recovered/Resolved]
  - Bradyphrenia [Recovered/Resolved]
  - Intentional overdose [Unknown]
